FAERS Safety Report 17740240 (Version 6)
Quarter: 2021Q4

REPORT INFORMATION
  Report Type: Spontaneous
  Country: US (occurrence: US)
  Receive Date: 20200504
  Receipt Date: 20211029
  Transmission Date: 20220303
  Serious: No
  Sender: FDA-Public Use
  Company Number: US-PFIZER INC-2020125065

PATIENT
  Age: 48 Year
  Sex: Female
  Weight: 110.22 kg

DRUGS (1)
  1. DETROL LA [Suspect]
     Active Substance: TOLTERODINE TARTRATE
     Indication: Incontinence
     Dosage: 4 MG, ONCE A DAY
     Route: 048
     Dates: start: 2006

REACTIONS (2)
  - Pain [Unknown]
  - Weight decreased [Unknown]
